FAERS Safety Report 24985095 (Version 1)
Quarter: 2025Q1

REPORT INFORMATION
  Report Type: Spontaneous
  Country: US (occurrence: None)
  Receive Date: 20250218
  Receipt Date: 20250218
  Transmission Date: 20250409
  Serious: No
  Sender: FDA-CTU
  Company Number: None

PATIENT
  Age: 24 Year
  Sex: Female
  Weight: 56.7 kg

DRUGS (1)
  1. COSENTYX [Suspect]
     Active Substance: SECUKINUMAB
     Indication: Hidradenitis
     Dosage: OTHER QUANTITY : 300MG (1 PEN);?FREQUENCY : MONTHLY;?
     Route: 058
     Dates: start: 202412

REACTIONS (2)
  - Omphalitis [None]
  - Abscess [None]
